FAERS Safety Report 4945139-7 (Version None)
Quarter: 2006Q1

REPORT INFORMATION
  Report Type: 
  Country: None (occurrence: None)
  Receive Date: 20060117
  Receipt Date: 20041209
  Transmission Date: 20060701
  Serious: Yes (Other)
  Sender: FDA-Public Use
  Company Number: A03200404159

PATIENT
  Age: 32 Year
  Sex: Male
  Weight: 116.5744 kg

DRUGS (9)
  1. PLAVIX [Suspect]
     Indication: FACTOR V LEIDEN MUTATION
     Dosage: 75 MG QD - ORAL
     Route: 048
     Dates: start: 20030101, end: 20041201
  2. PLAVIX [Suspect]
     Indication: ISCHAEMIC STROKE
     Dosage: 75 MG QD - ORAL
     Route: 048
     Dates: start: 20030101, end: 20041201
  3. PLAVIX [Suspect]
     Indication: TRANSIENT ISCHAEMIC ATTACK
     Dosage: 75 MG QD - ORAL
     Route: 048
     Dates: start: 20030101, end: 20041201
  4. COUMADIN [Suspect]
     Indication: FACTOR V LEIDEN MUTATION
     Dosage: ORAL
     Route: 048
  5. COUMADIN [Suspect]
     Indication: ISCHAEMIC STROKE
     Dosage: ORAL
     Route: 048
  6. COUMADIN [Suspect]
     Indication: TRANSIENT ISCHAEMIC ATTACK
     Dosage: ORAL
     Route: 048
  7. VALSARTAN/HYDROCHLOROTHIAZIDE [Concomitant]
  8. SIMVASTATIN [Concomitant]
  9. INSULIN ASPART [Concomitant]

REACTIONS (2)
  - DRUG INEFFECTIVE [None]
  - TRANSIENT ISCHAEMIC ATTACK [None]
